FAERS Safety Report 8570843-1 (Version None)
Quarter: 2012Q3

REPORT INFORMATION
  Report Type: 
  Country: None (occurrence: None)
  Receive Date: 20120806
  Receipt Date: 20120726
  Transmission Date: 20120928
  Serious: Yes (Hospitalization)
  Sender: FDA-Public Use
  Company Number: US-BIOGENIDEC-2012BI020569

PATIENT
  Age: 52 Year
  Sex: Female

DRUGS (8)
  1. TYSABRI [Suspect]
     Indication: MULTIPLE SCLEROSIS
     Route: 042
     Dates: start: 20111230, end: 20120227
  2. ZOLOFT [Concomitant]
  3. PREDNISONE [Concomitant]
  4. PEPCID [Concomitant]
  5. NAPROXEN [Concomitant]
  6. MECLIZINE [Concomitant]
  7. BUMEX [Concomitant]
  8. BACLOFEN [Concomitant]

REACTIONS (7)
  - ENTEROCOCCAL INFECTION [None]
  - NECROTISING COLITIS [None]
  - PSEUDOMEMBRANOUS COLITIS [None]
  - SEPSIS [None]
  - PELVIC ABSCESS [None]
  - MALNUTRITION [None]
  - ABSCESS FUNGAL [None]
